FAERS Safety Report 5105949-2 (Version None)
Quarter: 2006Q3

REPORT INFORMATION
  Report Type: 
  Country: None (occurrence: None)
  Receive Date: 20060912
  Receipt Date: 20060825
  Transmission Date: 20061208
  Serious: Yes (Hospitalization, Other)
  Sender: FDA-Public Use
  Company Number: US200603004891

PATIENT
  Age: 64 Year
  Sex: Male
  Weight: 86.2 kg

DRUGS (6)
  1. ZYPREXA [Suspect]
     Indication: SCHIZOAFFECTIVE DISORDER
     Dosage: SEE IMAGE
     Dates: start: 20040101
  2. ZYPREXA [Suspect]
     Indication: SCHIZOAFFECTIVE DISORDER
     Dosage: SEE IMAGE
     Dates: start: 20040101
  3. SEROQUEL [Concomitant]
  4. STELAZINE [Concomitant]
  5. DEPAKOTE [Concomitant]
  6. MICROZIDE [Concomitant]

REACTIONS (4)
  - ANAEMIA [None]
  - DIABETES MELLITUS NON-INSULIN-DEPENDENT [None]
  - GASTROINTESTINAL HAEMORRHAGE [None]
  - PANCREATITIS [None]
